FAERS Safety Report 15498014 (Version 1)
Quarter: 2018Q4

REPORT INFORMATION
  Report Type: Other
  Country: FR (occurrence: FR)
  Receive Date: 20181015
  Receipt Date: 20181015
  Transmission Date: 20190205
  Serious: Yes (Other)
  Sender: FDA-Public Use
  Company Number: FR-CELLTRION INC.-2018FR023060

PATIENT

DRUGS (12)
  1. GAVISCON                           /00237601/ [Concomitant]
     Active Substance: ALUMINUM HYDROXIDE\MAGNESIUM CARBONATE
  2. LEVOTHYROX [Concomitant]
     Active Substance: LEVOTHYROXINE
  3. DOLIPRANE [Concomitant]
     Active Substance: ACETAMINOPHEN
  4. BROMAZEPAM [Concomitant]
     Active Substance: BROMAZEPAM
  5. REMSIMA [Suspect]
     Active Substance: INFLIXIMAB
     Indication: RHEUMATIC DISORDER
     Dosage: UNK
     Route: 042
     Dates: start: 201709, end: 201709
  6. PREDNISOLONE. [Concomitant]
     Active Substance: PREDNISOLONE
  7. DUROGESIC [Concomitant]
     Active Substance: FENTANYL
  8. REMSIMA [Suspect]
     Active Substance: INFLIXIMAB
     Dosage: UNK
     Route: 042
     Dates: start: 201804, end: 201804
  9. OXYNORM [Concomitant]
     Active Substance: OXYCODONE HYDROCHLORIDE
  10. CALCIDOSE                          /00944201/ [Concomitant]
     Active Substance: CALCIUM CARBONATE\CHOLECALCIFEROL
  11. TRIMEBUTINE [Concomitant]
     Active Substance: TRIMEBUTINE
  12. IBUFETUM [Concomitant]
     Active Substance: IBUPROFEN

REACTIONS (2)
  - Drug ineffective [Recovered/Resolved]
  - Hypersensitivity [Recovered/Resolved]

NARRATIVE: CASE EVENT DATE: 201804
